FAERS Safety Report 7487279-7 (Version None)
Quarter: 2011Q2

REPORT INFORMATION
  Report Type: 
  Country: None (occurrence: None)
  Receive Date: 20110518
  Receipt Date: 20110404
  Transmission Date: 20111010
  Serious: Yes (Hospitalization, Other)
  Sender: FDA-Public Use
  Company Number: US-BAYER-201038150NA

PATIENT
  Age: 21 Year
  Sex: Female
  Weight: 63.492 kg

DRUGS (10)
  1. YASMIN [Suspect]
     Indication: PRODUCT USED FOR UNKNOWN INDICATION
     Dosage: UNK UNK, QD
     Route: 048
     Dates: start: 20050201, end: 20090401
  2. MACROBID [Concomitant]
     Indication: URINARY TRACT INFECTION
     Dosage: UNK
     Dates: start: 20040405
  3. CLEOCIN [Concomitant]
     Indication: VAGINAL INFECTION
  4. BACTRIM DS [Concomitant]
     Indication: URINARY TRACT INFECTION
     Dosage: UNK
     Dates: start: 20060417
  5. CLEOCIN [Concomitant]
     Indication: URINARY TRACT INFECTION
     Dosage: UNK
     Dates: start: 20040405
  6. YASMIN [Suspect]
     Dosage: UNK
     Dates: start: 20030801
  7. LEVAQUIN [Concomitant]
     Indication: URINARY TRACT INFECTION
     Dosage: UNK
     Dates: start: 20040504
  8. MACROBID [Concomitant]
     Indication: VAGINAL INFECTION
  9. VIRAL VACCINES [Concomitant]
     Dosage: UNK
  10. ANTIVERT [Concomitant]

REACTIONS (4)
  - GALLBLADDER CHOLESTEROLOSIS [None]
  - CHOLECYSTITIS CHRONIC [None]
  - GALLBLADDER INJURY [None]
  - VERTIGO [None]
